FAERS Safety Report 7688302-7 (Version None)
Quarter: 2011Q3

REPORT INFORMATION
  Report Type: 
  Country: None (occurrence: None)
  Receive Date: 20110817
  Receipt Date: 20110207
  Transmission Date: 20111222
  Serious: No
  Sender: FDA-Public Use
  Company Number: US-KINGPHARMUSA00001-K201100136

PATIENT
  Sex: Female

DRUGS (5)
  1. CYTOMEL [Suspect]
     Dosage: 15 MCG, QD
     Route: 048
     Dates: start: 20090201, end: 20100301
  2. ESTROGENS [Concomitant]
  3. CYTOMEL [Suspect]
     Indication: HYPOTHYROIDISM
     Dosage: 15 MCG, QD
     Route: 048
     Dates: start: 20101001
  4. PROGESTERONE [Concomitant]
  5. CALCIUM CARBONATE [Concomitant]

REACTIONS (6)
  - PRURITUS [None]
  - WEIGHT INCREASED [None]
  - ALOPECIA [None]
  - THYROXINE DECREASED [None]
  - SWELLING [None]
  - INSOMNIA [None]
